FAERS Safety Report 21561487 (Version 2)
Quarter: 2023Q1

REPORT INFORMATION
  Report Type: Spontaneous
  Country: US (occurrence: US)
  Receive Date: 20221107
  Receipt Date: 20230103
  Transmission Date: 20230417
  Serious: No
  Sender: FDA-Public Use
  Company Number: US-ALXN-A202213516

PATIENT
  Sex: Male

DRUGS (1)
  1. SOLIRIS [Suspect]
     Active Substance: ECULIZUMAB
     Indication: Haemolytic uraemic syndrome
     Dosage: 300 MG, Q3W
     Route: 042

REACTIONS (2)
  - Gastric infection [Unknown]
  - Off label use [Unknown]
